FAERS Safety Report 12633173 (Version 2)
Quarter: 2016Q3

REPORT INFORMATION
  Report Type: Spontaneous
  Country: US (occurrence: US)
  Receive Date: 20160808
  Receipt Date: 20160808
  Transmission Date: 20161109
  Serious: No
  Sender: FDA-Public Use
  Company Number: US-BEH-2016058715

PATIENT
  Sex: Female
  Weight: 131 kg

DRUGS (27)
  1. HIZENTRA [Suspect]
     Active Substance: HUMAN IMMUNOGLOBULIN G
     Route: 058
  2. HIZENTRA [Suspect]
     Active Substance: HUMAN IMMUNOGLOBULIN G
  3. MACROBID [Concomitant]
     Active Substance: NITROFURANTOIN\NITROFURANTOIN MONOHYDRATE
  4. AMPICILLIN [Concomitant]
     Active Substance: AMPICILLIN
  5. TRAMADOL. [Concomitant]
     Active Substance: TRAMADOL
  6. PENICILLIN [Concomitant]
     Active Substance: PENICILLIN
  7. BYSTOLIC [Concomitant]
     Active Substance: NEBIVOLOL HYDROCHLORIDE
  8. HIZENTRA [Suspect]
     Active Substance: HUMAN IMMUNOGLOBULIN G
     Indication: IMMUNODEFICIENCY COMMON VARIABLE
     Route: 058
  9. DIPHENHYDRAMINE. [Concomitant]
     Active Substance: DIPHENHYDRAMINE
  10. EPIPEN [Concomitant]
     Active Substance: EPINEPHRINE
  11. BACTRIM DS [Concomitant]
     Active Substance: SULFAMETHOXAZOLE\TRIMETHOPRIM
  12. FUROSEMIDE. [Concomitant]
     Active Substance: FUROSEMIDE
  13. TYLENOL ARTHRITIS PAIN [Concomitant]
     Active Substance: ACETAMINOPHEN
  14. SPIRONOLACTONE. [Concomitant]
     Active Substance: SPIRONOLACTONE
  15. VITAMIN D3 [Concomitant]
     Active Substance: CHOLECALCIFEROL
  16. DAILY MULTIVITAMIN [Concomitant]
     Active Substance: VITAMINS
  17. VITAMIN D [Concomitant]
     Active Substance: CHOLECALCIFEROL
  18. XANAX [Concomitant]
     Active Substance: ALPRAZOLAM
  19. TERAZOSIN [Concomitant]
     Active Substance: TERAZOSIN\TERAZOSIN HYDROCHLORIDE
  20. LIPITOR [Concomitant]
     Active Substance: ATORVASTATIN CALCIUM
  21. ASCORBIC ACID. [Concomitant]
     Active Substance: ASCORBIC ACID
  22. ASPIRIN EC [Concomitant]
     Active Substance: ASPIRIN
  23. ENABLEX [Concomitant]
     Active Substance: DARIFENACIN HYDROBROMIDE
  24. KAOCHLOR-EFF [Concomitant]
  25. SUPER OMEGA-3 [Concomitant]
  26. CHILDREN^S ASPIRIN [Concomitant]
     Active Substance: ASPIRIN
  27. ZOLOFT [Concomitant]
     Active Substance: SERTRALINE HYDROCHLORIDE

REACTIONS (1)
  - Sinusitis [Unknown]
